FAERS Safety Report 15993703 (Version 1)
Quarter: 2019Q1

REPORT INFORMATION
  Report Type: Spontaneous
  Country: CN (occurrence: CN)
  Receive Date: 20190222
  Receipt Date: 20190222
  Transmission Date: 20190418
  Serious: Yes (Other)
  Sender: FDA-Public Use
  Company Number: CN-BAXTER-2019BAX003483

PATIENT
  Age: 54 Year
  Sex: Male
  Weight: 75 kg

DRUGS (4)
  1. 20% MANNITOL INJECTION [Suspect]
     Active Substance: MANNITOL
     Indication: BLOOD PRESSURE MANAGEMENT
     Dosage: DRUG RE-INTRODUCED
     Route: 041
  2. 20% MANNITOL INJECTION [Suspect]
     Active Substance: MANNITOL
     Indication: SUPPORTIVE CARE
  3. 20% MANNITOL INJECTION [Suspect]
     Active Substance: MANNITOL
     Indication: DEHYDRATION
     Dosage: Q6H
     Route: 041
     Dates: start: 20190104, end: 20190106
  4. 20% MANNITOL INJECTION [Suspect]
     Active Substance: MANNITOL
     Indication: REDUCTION OF INCREASED INTRACRANIAL PRESSURE
     Dosage: Q12H
     Route: 041

REACTIONS (1)
  - Renal impairment [Recovering/Resolving]

NARRATIVE: CASE EVENT DATE: 20190107
